FAERS Safety Report 23682946 (Version 1)
Quarter: 2024Q1

REPORT INFORMATION
  Report Type: Spontaneous
  Country: US (occurrence: None)
  Receive Date: 20240327
  Receipt Date: 20240327
  Transmission Date: 20240409
  Serious: Yes (Life-Threatening, Hospitalization, Disabling, Other)
  Sender: FDA-Public Use
  Company Number: None

PATIENT
  Age: 25 Year
  Sex: Female
  Weight: 51.75 kg

DRUGS (2)
  1. VENLAFAXINE HYDROCHLORIDE [Suspect]
     Active Substance: VENLAFAXINE HYDROCHLORIDE
     Indication: Seasonal affective disorder
     Dosage: 1 CAPSUE DAILY ORAL
     Route: 048
  2. ADDERALL [Concomitant]
     Active Substance: AMPHETAMINE ASPARTATE\AMPHETAMINE SULFATE\DEXTROAMPHETAMINE SACCHARATE\DEXTROAMPHETAMINE SULFATE

REACTIONS (28)
  - Somnolence [None]
  - Nausea [None]
  - Dizziness [None]
  - Insomnia [None]
  - Sleep terror [None]
  - Hallucination, auditory [None]
  - Confusional state [None]
  - Withdrawal syndrome [None]
  - Crying [None]
  - Paranoia [None]
  - Nightmare [None]
  - Product use issue [None]
  - Suicidal ideation [None]
  - Homicidal ideation [None]
  - Depression [None]
  - Pruritus [None]
  - Electric shock sensation [None]
  - Cerebral disorder [None]
  - Histrionic personality disorder [None]
  - Feeling abnormal [None]
  - Hypoaesthesia [None]
  - Dissociation [None]
  - Tremor [None]
  - Dyskinesia [None]
  - Vomiting [None]
  - Tremor [None]
  - Violence-related symptom [None]
  - Aggression [None]

NARRATIVE: CASE EVENT DATE: 20231217
